FAERS Safety Report 17180969 (Version 1)
Quarter: 2019Q4

REPORT INFORMATION
  Report Type: Spontaneous
  Country: SE (occurrence: SE)
  Receive Date: 20191219
  Receipt Date: 20191219
  Transmission Date: 20200122
  Serious: No
  Sender: FDA-Public Use
  Company Number: SE-SA-2019SA348810

PATIENT
  Sex: Female

DRUGS (1)
  1. MULTAQ [Suspect]
     Active Substance: DRONEDARONE
     Indication: ARRHYTHMIA
     Dosage: 400 MG

REACTIONS (3)
  - Peripheral swelling [Unknown]
  - Respiratory rate increased [Unknown]
  - Blood creatinine increased [Unknown]
